FAERS Safety Report 16971199 (Version 1)
Quarter: 2019Q4

REPORT INFORMATION
  Report Type: Spontaneous
  Country: PR (occurrence: PR)
  Receive Date: 20191028
  Receipt Date: 20191028
  Transmission Date: 20200122
  Serious: No
  Sender: FDA-Public Use
  Company Number: None

PATIENT
  Age: 27 Year
  Sex: Female

DRUGS (1)
  1. CEFEPIME [Suspect]
     Active Substance: CEFEPIME HYDROCHLORIDE
     Indication: CERVIX CARCINOMA
     Route: 041
     Dates: start: 20191012, end: 20191013

REACTIONS (1)
  - Pruritus [None]

NARRATIVE: CASE EVENT DATE: 20191013
